FAERS Safety Report 21281169 (Version 1)
Quarter: 2022Q3

REPORT INFORMATION
  Report Type: Spontaneous
  Country: CN (occurrence: CN)
  Receive Date: 20220901
  Receipt Date: 20220901
  Transmission Date: 20221026
  Serious: Yes (Death, Other)
  Sender: FDA-Public Use
  Company Number: CN-STRIDES ARCOLAB LIMITED-2022SP010872

PATIENT
  Age: 40 Year
  Sex: Female

DRUGS (7)
  1. PREDNISOLONE [Suspect]
     Active Substance: PREDNISOLONE
     Indication: Central nervous system lymphoma
     Dosage: 10 MILLIGRAM (ONCE A WEEK) (DRUG STOP DATE: 15-NOV-2021)
     Route: 065
  2. METHOTREXATE [Suspect]
     Active Substance: METHOTREXATE
     Indication: Central nervous system lymphoma
     Dosage: 3.5 GRAM PER SQUARE METRE, (HIGH-DOSE METHOTREXATE 3.5 G/M2 OVER 4H ON DAY 2 EVERY 4 WEEK) (STOP DAT
     Route: 065
  3. RITUXIMAB [Suspect]
     Active Substance: RITUXIMAB
     Indication: Central nervous system lymphoma
     Dosage: 375 MILLIGRAM/SQ. METER (ON DAY 1 EVERY 4 WEEK) (STOP DATE: 15-NOV-2021)
     Route: 042
  4. TEMOZOLOMIDE [Suspect]
     Active Substance: TEMOZOLOMIDE
     Indication: Central nervous system lymphoma
     Dosage: 150 MILLIGRAM/SQ. METER, QD (ONCE DAILY ON DAYS 4-8 EVERY 4 WEEKS) (STOP DATE: 15-NOV-2021)
     Route: 065
  5. ORELABRUTINIB [Suspect]
     Active Substance: ORELABRUTINIB
     Indication: Central nervous system lymphoma
     Dosage: 150 MILLIGRAM, QD (STOP DATE: 15-NOV-2021)
     Route: 048
  6. LENALIDOMIDE [Suspect]
     Active Substance: LENALIDOMIDE
     Indication: Central nervous system lymphoma
     Dosage: 25 MILLIGRAM, QD (STOP DATE: 15-NOV-2021)
     Route: 065
  7. TUCIDINOSTAT [Suspect]
     Active Substance: TUCIDINOSTAT
     Indication: Neoplasm
     Dosage: UNK (STOP DATE: 15-NOV-2021)
     Route: 065

REACTIONS (2)
  - Drug ineffective [Fatal]
  - Toxicity to various agents [Unknown]
